FAERS Safety Report 15921465 (Version 1)
Quarter: 2019Q1

REPORT INFORMATION
  Report Type: Spontaneous
  Country: US (occurrence: US)
  Receive Date: 20190205
  Receipt Date: 20190205
  Transmission Date: 20190417
  Serious: Yes (Death)
  Sender: FDA-Public Use
  Company Number: US-VIFOR (INTERNATIONAL) INC.-VIT-2019-00869

PATIENT
  Age: 73 Year
  Sex: Male

DRUGS (9)
  1. ENTECAVIR. [Concomitant]
     Active Substance: ENTECAVIR
  2. PHOSLO [Concomitant]
     Active Substance: CALCIUM ACETATE
  3. BUMEX [Concomitant]
     Active Substance: BUMETANIDE
  4. ALLOPURINOL. [Concomitant]
     Active Substance: ALLOPURINOL
  5. VELTASSA [Suspect]
     Active Substance: PATIROMER
     Indication: HYPERKALAEMIA
     Route: 048
  6. ATORVASTATIN CALCIUM. [Concomitant]
     Active Substance: ATORVASTATIN CALCIUM
  7. FENOFIBRATE. [Concomitant]
     Active Substance: FENOFIBRATE
  8. GLIPIZIDE. [Concomitant]
     Active Substance: GLIPIZIDE
  9. METOPROLOL TARTRATE. [Concomitant]
     Active Substance: METOPROLOL TARTRATE

REACTIONS (1)
  - Death [Fatal]

NARRATIVE: CASE EVENT DATE: 20190128
